FAERS Safety Report 6515891-8 (Version None)
Quarter: 2009Q4

REPORT INFORMATION
  Report Type: 
  Country: None (occurrence: None)
  Receive Date: 20091223
  Receipt Date: 20091215
  Transmission Date: 20100525
  Serious: Yes (Hospitalization)
  Sender: FDA-Public Use
  Company Number: US-SANOFI-AVENTIS-2009SA003831

PATIENT
  Age: 25 Year
  Sex: Male
  Weight: 65 kg

DRUGS (4)
  1. LOVENOX [Suspect]
     Indication: THROMBOSIS PROPHYLAXIS
     Route: 065
     Dates: start: 20091102, end: 20091111
  2. LOVENOX [Suspect]
     Route: 058
     Dates: start: 20091111, end: 20091113
  3. LOVENOX [Suspect]
     Route: 058
     Dates: end: 20091123
  4. LORTAB [Concomitant]
     Indication: MUSCULOSKELETAL CHEST PAIN

REACTIONS (4)
  - DEEP VEIN THROMBOSIS [None]
  - DRUG INEFFECTIVE [None]
  - PNEUMONIA STAPHYLOCOCCAL [None]
  - PULMONARY EMBOLISM [None]
